FAERS Safety Report 17874507 (Version 1)
Quarter: 2020Q2

REPORT INFORMATION
  Report Type: Report from Study
  Country: US (occurrence: US)
  Receive Date: 20200609
  Receipt Date: 20200609
  Transmission Date: 20200714
  Serious: Yes (Death, Other)
  Sender: FDA-Public Use
  Company Number: US-TEVA-2020-US-1245360

PATIENT
  Age: 79 Year
  Sex: Female

DRUGS (4)
  1. CARBOPLATIN. [Suspect]
     Active Substance: CARBOPLATIN
     Indication: CLEAR CELL CARCINOMA OF CERVIX
     Dosage: RECEIVED 6 CYCLES
     Route: 065
  2. CONJUGATED ESTROGEN [Suspect]
     Active Substance: ESTROGENS, CONJUGATED
     Indication: GENITOURINARY SYMPTOM
     Dosage: RECEIVED 0.625 MG/G, 0.5MG DAILY
     Route: 067
  3. PACLITAXEL. [Suspect]
     Active Substance: PACLITAXEL
     Indication: CLEAR CELL CARCINOMA OF CERVIX
     Dosage: RECEIVED 6 CYCLES
     Route: 065
  4. CONJUGATED ESTROGEN [Suspect]
     Active Substance: ESTROGENS, CONJUGATED
     Indication: MENOPAUSAL SYMPTOMS

REACTIONS (4)
  - Clear cell carcinoma of cervix [Fatal]
  - Deep vein thrombosis [Unknown]
  - Menopausal symptoms [Unknown]
  - Genitourinary symptom [Unknown]
